FAERS Safety Report 21687484 (Version 1)
Quarter: 2022Q4

REPORT INFORMATION
  Report Type: Other
  Country: US (occurrence: None)
  Receive Date: 20221206
  Receipt Date: 20221206
  Transmission Date: 20230113
  Serious: No
  Sender: FDA-Public Use
  Company Number: US-ROCHE-3230390

PATIENT
  Age: 44 Year
  Sex: Female
  Weight: 83.536 kg

DRUGS (15)
  1. OCREVUS [Suspect]
     Active Substance: OCRELIZUMAB
     Indication: Relapsing-remitting multiple sclerosis
     Dosage: 300MG IV INFUSION ONCE 2WKS LATER 2ND 300MG INFUS.
     Route: 042
     Dates: start: 2020
  2. METFORMIN [Concomitant]
     Active Substance: METFORMIN HYDROCHLORIDE
  3. LORATADINE [Concomitant]
     Active Substance: LORATADINE
  4. EMGALITY [Concomitant]
     Active Substance: GALCANEZUMAB-GNLM
  5. CITALOPRAM [Concomitant]
     Active Substance: CITALOPRAM HYDROBROMIDE
  6. NORCO [Concomitant]
     Active Substance: ACETAMINOPHEN\HYDROCODONE BITARTRATE
  7. FLUCONAZOLE [Concomitant]
     Active Substance: FLUCONAZOLE
  8. MONTELUKAST SODIUM [Concomitant]
     Active Substance: MONTELUKAST SODIUM
  9. LINZESS [Concomitant]
     Active Substance: LINACLOTIDE
  10. JARDIANCE [Concomitant]
     Active Substance: EMPAGLIFLOZIN
  11. ATORVASTATIN [Concomitant]
     Active Substance: ATORVASTATIN
  12. GLIMEPIRIDE [Concomitant]
     Active Substance: GLIMEPIRIDE
  13. ONDANSETRON [Concomitant]
     Active Substance: ONDANSETRON
  14. ACYCLOVIR [Concomitant]
     Active Substance: ACYCLOVIR
  15. PREDNISONE [Concomitant]
     Active Substance: PREDNISONE

REACTIONS (7)
  - Drug ineffective [Unknown]
  - Muscle spasms [Not Recovered/Not Resolved]
  - Pain [Not Recovered/Not Resolved]
  - Fungal infection [Not Recovered/Not Resolved]
  - Influenza [Recovered/Resolved]
  - Somnolence [Recovered/Resolved]
  - Oral herpes [Not Recovered/Not Resolved]

NARRATIVE: CASE EVENT DATE: 20200101
